FAERS Safety Report 4870437-5 (Version None)
Quarter: 2006Q1

REPORT INFORMATION
  Report Type: 
  Country: None (occurrence: None)
  Receive Date: 20060103
  Receipt Date: 20050407
  Transmission Date: 20060701
  Serious: No
  Sender: FDA-Public Use
  Company Number: US-BRISTOL-MYERS SQUIBB COMPANY-12931739

PATIENT
  Sex: Female

DRUGS (1)
  1. DESYREL [Suspect]

REACTIONS (3)
  - CHEST PAIN [None]
  - DRY MOUTH [None]
  - HEADACHE [None]
